FAERS Safety Report 25087928 (Version 2)
Quarter: 2025Q3

REPORT INFORMATION
  Report Type: Report from Study
  Country: US (occurrence: US)
  Receive Date: 20250318
  Receipt Date: 20250809
  Transmission Date: 20251021
  Serious: Yes (Other)
  Sender: ALEXION PHARMACEUTICALS
  Company Number: US-AstraZeneca-CH-00825899A

PATIENT
  Sex: Female

DRUGS (1)
  1. OSIMERTINIB [Suspect]
     Active Substance: OSIMERTINIB
     Route: 065

REACTIONS (7)
  - Syncope [Unknown]
  - COVID-19 [Unknown]
  - Fall [Unknown]
  - Pain [Unknown]
  - Fatigue [Unknown]
  - Decreased appetite [Unknown]
  - Depression [Unknown]
